FAERS Safety Report 7818240-8 (Version None)
Quarter: 2011Q4

REPORT INFORMATION
  Report Type: 
  Country: None (occurrence: None)
  Receive Date: 20111017
  Receipt Date: 20111004
  Transmission Date: 20120403
  Serious: Yes (Congenital Anomaly)
  Sender: FDA-Public Use
  Company Number: US-BAYER-2011-099410

PATIENT

DRUGS (1)
  1. YAZ [Suspect]
     Route: 064

REACTIONS (1)
  - CONGENITAL ANOMALY [None]
